FAERS Safety Report 11107736 (Version 1)
Quarter: 2015Q2

REPORT INFORMATION
  Report Type: Spontaneous
  Country: US (occurrence: US)
  Receive Date: 20150512
  Receipt Date: 20150512
  Transmission Date: 20150821
  Serious: No
  Sender: FDA-Public Use
  Company Number: US-PFIZER INC-2015160334

PATIENT
  Sex: Female

DRUGS (2)
  1. CHANTIX [Suspect]
     Active Substance: VARENICLINE TARTRATE
     Dosage: 1.5 MG, DAILY (1MG AT NIGHT AND 1/2MG IN THE MORNING)
     Route: 048
     Dates: start: 201504
  2. CHANTIX [Suspect]
     Active Substance: VARENICLINE TARTRATE
     Dosage: 1 MG, 2X/DAY (1 MG TABLET IN MORNING AND 1 MG IN THE EVENING)
     Route: 048
     Dates: start: 201504, end: 201504

REACTIONS (3)
  - Headache [Not Recovered/Not Resolved]
  - Intentional product misuse [Unknown]
  - Nausea [Recovering/Resolving]

NARRATIVE: CASE EVENT DATE: 2015
